FAERS Safety Report 19178848 (Version 3)
Quarter: 2023Q2

REPORT INFORMATION
  Report Type: Spontaneous
  Country: DE (occurrence: DE)
  Receive Date: 20210426
  Receipt Date: 20230503
  Transmission Date: 20230721
  Serious: Yes (Hospitalization, Other)
  Sender: FDA-Public Use
  Company Number: DE-LUPIN PHARMACEUTICALS INC.-2021-05158

PATIENT

DRUGS (16)
  1. AGOMELATINE [Suspect]
     Active Substance: AGOMELATINE
     Indication: Depressive symptom
     Dosage: 50 MILLIGRAM, QD
     Route: 065
  2. AGOMELATINE [Suspect]
     Active Substance: AGOMELATINE
     Indication: Insomnia
  3. AGOMELATINE [Suspect]
     Active Substance: AGOMELATINE
     Indication: Hypertension
  4. MIRTAZAPINE [Suspect]
     Active Substance: MIRTAZAPINE
     Indication: Insomnia
     Dosage: UNK, TREATMENT TRIAL
     Route: 065
  5. RANOLAZINE [Interacting]
     Active Substance: RANOLAZINE
     Indication: Hypertension
     Dosage: 375 MILLIGRAM, QD, THE PATIENT TOOK RANOLAZINE OCCASIONALLY
     Route: 065
  6. RASAGILINE [Interacting]
     Active Substance: RASAGILINE
     Indication: Parkinsonism
     Dosage: 1 MILLIGRAM, QD
     Route: 065
  7. RASAGILINE [Interacting]
     Active Substance: RASAGILINE
     Indication: Depressive symptom
  8. PRAMIPEXOLE [Suspect]
     Active Substance: PRAMIPEXOLE
     Indication: Depressive symptom
     Dosage: 0.525 MILLIGRAM, QD
     Route: 065
  9. PRAMIPEXOLE [Suspect]
     Active Substance: PRAMIPEXOLE
     Indication: Parkinson^s disease
     Dosage: UNK, DOSE REDUCED
     Route: 065
  10. PRAMIPEXOLE [Suspect]
     Active Substance: PRAMIPEXOLE
     Dosage: 1 MG, QD
     Route: 065
  11. MOCLOBEMIDE [Interacting]
     Active Substance: MOCLOBEMIDE
     Indication: Depressive symptom
     Dosage: 150 MILLIGRAM, QD
     Route: 065
  12. MOCLOBEMIDE [Interacting]
     Active Substance: MOCLOBEMIDE
     Indication: Parkinson^s disease
     Dosage: 450 MILLIGRAM, QD, THE CURRENT DOSE ; DOSE INCREASED ABOUT 1 YEAR PRIOR TO ADMISSION
     Route: 065
  13. TRAZODONE [Suspect]
     Active Substance: TRAZODONE HYDROCHLORIDE
     Indication: Insomnia
     Dosage: UNK, TREATMENT TRIAL
     Route: 065
  14. BENSERAZIDE\LEVODOPA [Suspect]
     Active Substance: BENSERAZIDE\LEVODOPA
     Indication: Parkinsonism
     Dosage: 1 DOSAGE FORM, QD, RETARD FORMULATION
     Route: 065
  15. BENSERAZIDE\LEVODOPA [Suspect]
     Active Substance: BENSERAZIDE\LEVODOPA
     Dosage: UNK, LEVODOPA/BENSERAZIDE RETARD WAS SWITCHED TO NON-RETARD FORMULATION OF 125 MG THREE TIMES A DAY
     Route: 065
  16. LEVOTHYROXINE [Suspect]
     Active Substance: LEVOTHYROXINE
     Indication: Hypothyroidism
     Dosage: 100 MICROGRAM, QD
     Route: 065

REACTIONS (8)
  - Serotonin syndrome [Recovered/Resolved]
  - Drug interaction [Recovered/Resolved]
  - Condition aggravated [Recovered/Resolved]
  - Serum serotonin increased [Recovered/Resolved]
  - Autonomic nervous system imbalance [Recovered/Resolved]
  - Drug ineffective for unapproved indication [Unknown]
  - Drug level increased [Recovered/Resolved]
  - Drug intolerance [Unknown]
